FAERS Safety Report 6595813-4 (Version None)
Quarter: 2010Q1

REPORT INFORMATION
  Report Type: 
  Country: None (occurrence: None)
  Receive Date: 20100223
  Receipt Date: 20100217
  Transmission Date: 20100710
  Serious: Yes (Other)
  Sender: FDA-Public Use
  Company Number: GB-SANOFI-AVENTIS-2010SA009718

PATIENT
  Age: 67 Year
  Sex: Female
  Weight: 84 kg

DRUGS (7)
  1. ARAVA [Suspect]
     Indication: POLYMYALGIA RHEUMATICA
     Route: 048
     Dates: start: 20090623, end: 20091101
  2. ARAVA [Suspect]
     Route: 048
     Dates: start: 20091101, end: 20100202
  3. ATORVASTATIN CALCIUM [Concomitant]
     Route: 048
  4. LANSOPRAZOLE [Concomitant]
     Indication: PROPHYLAXIS
     Route: 048
  5. PREDNISOLONE [Concomitant]
     Indication: POLYMYALGIA RHEUMATICA
     Route: 048
  6. RISEDRONIC ACID [Concomitant]
     Indication: PROPHYLAXIS
     Route: 048
  7. LEVOTHYROXINE SODIUM [Concomitant]
     Indication: HYPOTHYROIDISM
     Route: 048

REACTIONS (4)
  - ASTHENIA [None]
  - BLOOD PRESSURE INCREASED [None]
  - DYSPNOEA [None]
  - VENTRICULAR EXTRASYSTOLES [None]
